FAERS Safety Report 8455029-3 (Version None)
Quarter: 2012Q2

REPORT INFORMATION
  Report Type: 
  Country: None (occurrence: None)
  Receive Date: 20120614
  Receipt Date: 20120606
  Transmission Date: 20120825
  Serious: Yes (Hospitalization)
  Sender: FDA-Public Use
  Company Number: WAES 1108USA02063

PATIENT
  Age: 51 Year
  Sex: Male

DRUGS (12)
  1. RALTEGRAVIR [Suspect]
     Indication: HIV INFECTION
     Dosage: 400 MG/BID/PO
     Route: 048
     Dates: start: 20091215
  2. GLIPIZIDE [Suspect]
     Indication: DIABETES MELLITUS
     Dosage: DAILY/P0
     Route: 048
  3. LANTUS [Suspect]
     Indication: DIABETES MELLITUS
     Dosage: /BID/SC
     Route: 058
  4. HUMALOG [Suspect]
     Indication: DIABETES MELLITUS
     Dosage: /TID/SC
     Route: 058
  5. VITAMINS (UNSPECIFIED) [Concomitant]
  6. EMTRICITABINE AND TENOFOVIR DISOPROXIL FUMARATE [Suspect]
     Indication: HIV INFECTION
     Dosage: 500 MG/DAILY/PO
     Route: 048
     Dates: start: 20091215
  7. NASONEX [Concomitant]
  8. VIAGRA [Concomitant]
  9. IBUPROFEN [Concomitant]
  10. FERROUS SULFATE TAB [Concomitant]
  11. NORVASC [Concomitant]
  12. ZOLOFT [Concomitant]

REACTIONS (5)
  - TREATMENT NONCOMPLIANCE [None]
  - DIZZINESS [None]
  - DYSARTHRIA [None]
  - HYPERGLYCAEMIC HYPEROSMOLAR NONKETOTIC SYNDROME [None]
  - DEHYDRATION [None]
